FAERS Safety Report 6272634-3 (Version None)
Quarter: 2009Q3

REPORT INFORMATION
  Report Type: 
  Country: None (occurrence: None)
  Receive Date: 20090716
  Receipt Date: 20090716
  Transmission Date: 20100115
  Serious: Yes (Other)
  Sender: FDA-Public Use
  Company Number: None

PATIENT
  Age: 50 Year
  Sex: Female

DRUGS (4)
  1. BUPROPION HCL [Suspect]
     Indication: DEPRESSION
     Dosage: 300 MG / PER DAY / ORAL
     Route: 048
     Dates: start: 20090401
  2. SULFUR (SULFUR) (FORMULATION UNKNOWN) [Suspect]
     Indication: DRUG USE FOR UNKNOWN INDICATION
  3. ASCORBIC ACID [Concomitant]
  4. CYANOCOBALAMIN [Concomitant]

REACTIONS (6)
  - BLISTER [None]
  - FEELING HOT [None]
  - PHOTOSENSITIVITY REACTION [None]
  - PRURITUS [None]
  - SKIN DISORDER [None]
  - SKIN SWELLING [None]
